FAERS Safety Report 5989326-8 (Version None)
Quarter: 2008Q4

REPORT INFORMATION
  Report Type: 
  Country: None (occurrence: None)
  Receive Date: 20081205
  Receipt Date: 20081124
  Transmission Date: 20090506
  Serious: Yes (Death, Hospitalization, Other)
  Sender: FDA-Public Use
  Company Number: 54718

PATIENT
  Age: 51 Year
  Sex: Male

DRUGS (1)
  1. RANITIDINE [Suspect]
     Indication: STRESS ULCER
     Dosage: 50MG

REACTIONS (5)
  - ANAPHYLACTIC REACTION [None]
  - BRAIN OEDEMA [None]
  - LOSS OF CONSCIOUSNESS [None]
  - PETECHIAE [None]
  - PULMONARY CONGESTION [None]
